FAERS Safety Report 22657980 (Version 1)
Quarter: 2023Q2

REPORT INFORMATION
  Report Type: Other
  Country: PK (occurrence: None)
  Receive Date: 20230630
  Receipt Date: 20230630
  Transmission Date: 20230722
  Serious: Yes (Death)
  Sender: FDA-Public Use
  Company Number: PK-ROCHE-3377997

PATIENT
  Age: 58 Year
  Sex: Female

DRUGS (2)
  1. AVASTIN [Suspect]
     Active Substance: BEVACIZUMAB
     Indication: Hepatocellular carcinoma
     Dosage: ONGOING NO,  INTERVAL 3 WEEKS
     Route: 041
     Dates: start: 20230310
  2. TECENTRIQ [Suspect]
     Active Substance: ATEZOLIZUMAB
     Indication: Hepatocellular carcinoma
     Dosage: ONGOING NO, INTERVAL 3 WEEKS
     Route: 041
     Dates: start: 20230310

REACTIONS (1)
  - Hepatocellular carcinoma [Fatal]
